FAERS Safety Report 9261760 (Version 2)
Quarter: 2014Q2

REPORT INFORMATION
  Report Type: Spontaneous
  Country: US (occurrence: US)
  Receive Date: 20130429
  Receipt Date: 20140501
  Transmission Date: 20141212
  Serious: No
  Sender: FDA-Public Use
  Company Number: US-BAUSCH-BL-2013-000544

PATIENT
  Age: 77 Year
  Sex: Female

DRUGS (2)
  1. ALREX (LOTEPREDNOL ETABONATE OPHTHALMIC SUSPENSION 0.2%) [Suspect]
     Indication: ERYTHEMA OF EYELID
     Dosage: ONE DROP IN EACH EYE AS NEEDED
     Route: 047
     Dates: start: 20130120
  2. ALREX (LOTEPREDNOL ETABONATE OPHTHALMIC SUSPENSION 0.2%) [Suspect]
     Indication: EYELIDS PRURITUS

REACTIONS (2)
  - Ocular discomfort [Recovered/Resolved]
  - Drug ineffective [Recovered/Resolved]
